FAERS Safety Report 5869819-4 (Version None)
Quarter: 2008Q3

REPORT INFORMATION
  Report Type: 
  Country: None (occurrence: None)
  Receive Date: 20080904
  Receipt Date: 20080826
  Transmission Date: 20090109
  Serious: Yes (Other)
  Sender: FDA-Public Use
  Company Number: FR-AMGEN-US296234

PATIENT
  Sex: Female
  Weight: 86 kg

DRUGS (5)
  1. ENBREL [Suspect]
     Indication: RHEUMATOID ARTHRITIS
     Route: 058
     Dates: start: 20041129, end: 20050101
  2. ENBREL [Suspect]
     Route: 058
     Dates: start: 20050101, end: 20071026
  3. METHOTREXATE SODIUM [Suspect]
     Indication: RHEUMATOID ARTHRITIS
     Dosage: 10 MG TOTAL WEEKLY
     Route: 048
     Dates: start: 20030613, end: 20070201
  4. METHOTREXATE SODIUM [Suspect]
     Route: 048
     Dates: start: 20070212, end: 20070403
  5. METHOTREXATE SODIUM [Suspect]
     Dosage: 7.5 MG TOTAL WEEKLY
     Route: 048
     Dates: start: 19990422, end: 20030601

REACTIONS (2)
  - FOCAL SEGMENTAL GLOMERULOSCLEROSIS [None]
  - GLOMERULONEPHRITIS MEMBRANOUS [None]
